FAERS Safety Report 10644729 (Version 3)
Quarter: 2015Q1

REPORT INFORMATION
  Report Type: Report from Study
  Country: US (occurrence: US)
  Receive Date: 20141211
  Receipt Date: 20150324
  Transmission Date: 20150720
  Serious: Yes (Hospitalization, Other)
  Sender: FDA-Public Use
  Company Number: US-ROCHE-1504631

PATIENT
  Age: 4 Month
  Sex: Male
  Weight: 7.95 kg

DRUGS (4)
  1. NUTROPIN AQ [Suspect]
     Active Substance: SOMATROPIN
     Indication: PRADER-WILLI SYNDROME
     Route: 058
     Dates: start: 20141118
  2. NUTROPIN AQ [Suspect]
     Active Substance: SOMATROPIN
     Indication: GROWTH HORMONE DEFICIENCY
     Route: 058
     Dates: start: 20141204
  3. NUTROPIN AQ [Suspect]
     Active Substance: SOMATROPIN
     Route: 058
     Dates: start: 20141110
  4. HYDROCORTISONE. [Concomitant]
     Active Substance: HYDROCORTISONE
     Indication: RESPIRATORY DISTRESS
     Dosage: 1 TIME DOSE
     Route: 030
     Dates: start: 20141205, end: 20141205

REACTIONS (9)
  - Lethargy [Recovering/Resolving]
  - Respiratory syncytial virus infection [Recovered/Resolved]
  - Nasopharyngitis [Not Recovered/Not Resolved]
  - Rhinorrhoea [Not Recovered/Not Resolved]
  - Influenza [Unknown]
  - Choking [Recovering/Resolving]
  - Productive cough [Not Recovered/Not Resolved]
  - Dyspnoea [Recovering/Resolving]
  - Upper-airway cough syndrome [Unknown]

NARRATIVE: CASE EVENT DATE: 20141119
